FAERS Safety Report 4955633-0 (Version None)
Quarter: 2006Q1

REPORT INFORMATION
  Report Type: 
  Country: None (occurrence: None)
  Receive Date: 20060328
  Receipt Date: 20051025
  Transmission Date: 20060701
  Serious: Yes (Hospitalization, Disabling)
  Sender: FDA-Public Use
  Company Number: US-MERCK-0510USA09212

PATIENT
  Age: 56 Year
  Sex: Female
  Weight: 80 kg

DRUGS (13)
  1. VIOXX [Suspect]
     Indication: ARTHRALGIA
     Route: 048
     Dates: start: 19991001, end: 20040401
  2. VIOXX [Suspect]
     Indication: BACK PAIN
     Route: 048
     Dates: start: 19991001, end: 20040401
  3. ATENOLOL [Concomitant]
     Route: 065
  4. ADALAT [Concomitant]
     Route: 065
  5. CLONIDINE [Concomitant]
     Route: 065
  6. TOLUFAZEPAM [Concomitant]
     Route: 065
  7. VIACTIV SOFT CALCIUM CHEWS [Concomitant]
     Route: 065
  8. POTASSIUM (UNSPECIFIED) [Concomitant]
     Route: 065
  9. PREVACID [Concomitant]
     Route: 065
  10. LORAZEPAM [Concomitant]
     Route: 065
  11. PRILOSEC [Concomitant]
     Route: 065
  12. ZOLOFT [Concomitant]
     Route: 065
  13. ZOCOR [Concomitant]
     Route: 065

REACTIONS (38)
  - ABDOMINAL HERNIA [None]
  - ANAEMIA [None]
  - ANGINA PECTORIS [None]
  - ANXIETY DISORDER [None]
  - ARTHROPATHY [None]
  - ATRIAL FIBRILLATION [None]
  - BACTERAEMIA [None]
  - BREAST DISORDER [None]
  - BRONCHITIS [None]
  - CARDIAC FAILURE CONGESTIVE [None]
  - CARDIOMEGALY [None]
  - CEREBROVASCULAR ACCIDENT [None]
  - CHEST PAIN [None]
  - CORONARY ARTERY DISEASE [None]
  - DYSPNOEA [None]
  - DYSPNOEA EXACERBATED [None]
  - FEELING ABNORMAL [None]
  - GASTROOESOPHAGEAL REFLUX DISEASE [None]
  - GOUT [None]
  - HERNIA [None]
  - HYPERCHOLESTEROLAEMIA [None]
  - HYPERLIPIDAEMIA [None]
  - HYPERTENSION [None]
  - HYPERTENSIVE HEART DISEASE [None]
  - INSOMNIA [None]
  - INTERVERTEBRAL DISC DEGENERATION [None]
  - ISCHAEMIA [None]
  - MAJOR DEPRESSION [None]
  - NON-CARDIAC CHEST PAIN [None]
  - OEDEMA PERIPHERAL [None]
  - OSTEOARTHRITIS [None]
  - OTITIS MEDIA [None]
  - PAIN IN EXTREMITY [None]
  - PEPTIC ULCER [None]
  - RASH [None]
  - RECTAL CANCER [None]
  - SHOULDER PAIN [None]
  - SINOBRONCHITIS [None]
